FAERS Safety Report 9583246 (Version 1)
Quarter: 2013Q4

REPORT INFORMATION
  Report Type: Spontaneous
  Country: US (occurrence: US)
  Receive Date: 20131002
  Receipt Date: 20131002
  Transmission Date: 20140711
  Serious: No
  Sender: FDA-Public Use
  Company Number: US-AMGEN-USASP2013045622

PATIENT
  Age: 64 Year
  Sex: Male
  Weight: 122.45 kg

DRUGS (12)
  1. ENBREL [Suspect]
     Indication: PRODUCT USED FOR UNKNOWN INDICATION
     Dosage: 50 MG, QWK
     Route: 058
  2. METHOTREXATE [Concomitant]
     Dosage: 2.5 MG, UNK
  3. PREDNISONE [Concomitant]
     Dosage: 5 MG, UNK
  4. LIPITOR [Concomitant]
     Dosage: 10 MG, UNK
  5. LISINOPRIL [Concomitant]
     Dosage: 20 MG, UNK
  6. LORAZEPAM [Concomitant]
     Dosage: 2 MG, UNK
  7. METOPROLOL [Concomitant]
     Dosage: 200 MG, UNK
  8. ZOLPIDEM [Concomitant]
     Dosage: 12.5 MG, UNK
  9. BIOTIN [Concomitant]
     Dosage: 5000 UNK, UNK
  10. TYLENOL                            /00020001/ [Concomitant]
     Dosage: 325 MG, UNK
  11. FOLIC ACID [Concomitant]
     Dosage: 20 MG, UNK
  12. SODIUM BICARBONATE [Concomitant]
     Dosage: 10 GR, UNK

REACTIONS (2)
  - Pruritus [Unknown]
  - Injection site haemorrhage [Unknown]
